FAERS Safety Report 7346803-5 (Version None)
Quarter: 2011Q1

REPORT INFORMATION
  Report Type: 
  Country: None (occurrence: None)
  Receive Date: 20110302
  Receipt Date: 20110216
  Transmission Date: 20110831
  Serious: Yes (Disabling)
  Sender: FDA-Public Use
  Company Number: FR-004756

PATIENT
  Sex: Male
  Weight: 100 kg

DRUGS (2)
  1. FIRMAGON [Suspect]
     Indication: PROSTATE CANCER
     Dosage: 240 MG 1X SUBCUTANEOUS; 80 MG 1X SUBCUTANEOUS
     Route: 058
     Dates: start: 20110110, end: 20110110
  2. FIRMAGON [Suspect]
     Indication: PROSTATE CANCER
     Dosage: 240 MG 1X SUBCUTANEOUS; 80 MG 1X SUBCUTANEOUS
     Route: 058
     Dates: start: 20110201, end: 20110201

REACTIONS (4)
  - INJECTION SITE INDURATION [None]
  - INJECTION SITE INFLAMMATION [None]
  - GAIT DISTURBANCE [None]
  - INJECTION SITE PAIN [None]
